FAERS Safety Report 21978216 (Version 2)
Quarter: 2023Q1

REPORT INFORMATION
  Report Type: Spontaneous
  Country: SI (occurrence: None)
  Receive Date: 20230210
  Receipt Date: 20230322
  Transmission Date: 20230417
  Serious: Yes (Death, Hospitalization, Other)
  Sender: FDA-Public Use
  Company Number: 2023A028789

PATIENT
  Age: 77 Year
  Sex: Male
  Weight: 111 kg

DRUGS (13)
  1. ROSUVASTATIN [Suspect]
     Active Substance: ROSUVASTATIN
     Indication: Cardiovascular insufficiency
     Dosage: 20 MG20.0MG UNKNOWN
  2. ENTRESTO [Suspect]
     Active Substance: SACUBITRIL\VALSARTAN
     Indication: Cardiac failure
     Dosage: UNK
  3. ENTRESTO [Suspect]
     Active Substance: SACUBITRIL\VALSARTAN
     Indication: Cardiac failure
     Dosage: 1 DOSAGE FORM, TWO TIMES A DAY (97/103 MG)
  4. FUROSEMIDE [Suspect]
     Active Substance: FUROSEMIDE
     Indication: Cardiovascular insufficiency
     Dosage: UNK (EVERY OTHER DAY OR AS NEEDED)
  5. FUROSEMIDE [Suspect]
     Active Substance: FUROSEMIDE
     Indication: Cardiovascular insufficiency
     Dosage: 40 MG40.0MG UNKNOWN
  6. BISOPROLOL [Suspect]
     Active Substance: BISOPROLOL
     Indication: Cardiovascular insufficiency
     Dosage: 2.5 MG2.5MG UNKNOWN
  7. BISOPROLOL [Suspect]
     Active Substance: BISOPROLOL
     Indication: Cardiovascular insufficiency
     Dosage: 5 MG5.0MG UNKNOWN
  8. ALLOPURINOL [Suspect]
     Active Substance: ALLOPURINOL
     Indication: Cardiovascular insufficiency
     Dosage: 100 MG100.0MG UNKNOWN
  9. PERINDOPRIL [Concomitant]
     Active Substance: PERINDOPRIL
     Indication: Cardiovascular insufficiency
     Dosage: 4 MG4.0MG UNKNOWN
  10. AMLODIPINE [Concomitant]
     Active Substance: AMLODIPINE BESYLATE
     Indication: Cardiovascular insufficiency
     Dosage: 5 MG5.0MG UNKNOWN
  11. ASPIRIN [Concomitant]
     Active Substance: ASPIRIN
     Indication: Cardiovascular insufficiency
     Dosage: 100 MG
  12. DAPAGLIFLOZIN [Concomitant]
     Active Substance: DAPAGLIFLOZIN
     Indication: Cardiovascular insufficiency
     Dosage: 10 MG
  13. SPIRONOLACTONE [Concomitant]
     Active Substance: SPIRONOLACTONE
     Indication: Cardiovascular insufficiency
     Dosage: 25 MG, QOD

REACTIONS (18)
  - Pneumonia [Fatal]
  - Ischaemic cardiomyopathy [Unknown]
  - Pulmonary hypertension [Unknown]
  - Ejection fraction decreased [Unknown]
  - Hyperkalaemia [Recovering/Resolving]
  - Tricuspid valve incompetence [Unknown]
  - Aortic stenosis [Unknown]
  - Cardiac failure [Unknown]
  - Glomerular filtration rate decreased [Recovering/Resolving]
  - Tachypnoea [Recovering/Resolving]
  - Diastolic dysfunction [Unknown]
  - Peripheral swelling [Recovering/Resolving]
  - Weight increased [Recovering/Resolving]
  - Oedema peripheral [Recovering/Resolving]
  - Product use in unapproved indication [Unknown]
  - Joint injury [Recovering/Resolving]
  - Rales [Unknown]
  - Blood creatinine increased [Recovering/Resolving]
